FAERS Safety Report 7744645-X (Version None)
Quarter: 2011Q3

REPORT INFORMATION
  Report Type: 
  Country: None (occurrence: None)
  Receive Date: 20110912
  Receipt Date: 20110830
  Transmission Date: 20111222
  Serious: Yes (Other)
  Sender: FDA-Public Use
  Company Number: PHEH2011US00702

PATIENT
  Age: 52 Year
  Sex: Female

DRUGS (9)
  1. VITAMIN B KOMPLEX [Concomitant]
  2. M.V.I. [Concomitant]
  3. GILENYA [Suspect]
     Indication: MULTIPLE SCLEROSIS
     Dosage: 0.5 MG, QD
     Route: 048
     Dates: start: 20110201
  4. GLUCOSAMINE [Concomitant]
  5. FISH OIL [Concomitant]
     Route: 048
  6. MAGNESIUM [Concomitant]
  7. VITAMIN E [Concomitant]
  8. NAPROXEN (ALEVE) [Concomitant]
  9. FERROUS SULFATE TAB [Concomitant]
     Indication: ANAEMIA
     Dosage: 65 MG, DAILY
     Route: 048

REACTIONS (7)
  - DIZZINESS [None]
  - RED BLOOD CELL COUNT DECREASED [None]
  - FATIGUE [None]
  - DECREASED APPETITE [None]
  - DYSPEPSIA [None]
  - ANAEMIA [None]
  - BLOOD MAGNESIUM DECREASED [None]
